FAERS Safety Report 5946574-0 (Version None)
Quarter: 2008Q4

REPORT INFORMATION
  Report Type: 
  Country: None (occurrence: None)
  Receive Date: 20081110
  Receipt Date: 20081028
  Transmission Date: 20090506
  Serious: Yes (Other)
  Sender: FDA-Public Use
  Company Number: US-ELI_LILLY_AND_COMPANY-US200809001761

PATIENT
  Sex: Male
  Weight: 83.447 kg

DRUGS (7)
  1. STRATTERA [Suspect]
     Indication: ATTENTION DEFICIT/HYPERACTIVITY DISORDER
     Dosage: 60 MG, UNK
     Route: 065
     Dates: start: 20070331
  2. MULTI-VITAMINS [Concomitant]
  3. NICOTINAMIDE [Concomitant]
  4. PANTHENOL [Concomitant]
  5. RETINOL [Concomitant]
  6. RIBOFLAVIN TAB [Concomitant]
  7. THIAMINE HCL [Concomitant]

REACTIONS (1)
  - TYPE 2 DIABETES MELLITUS [None]
